FAERS Safety Report 18941407 (Version 1)
Quarter: 2021Q1

REPORT INFORMATION
  Report Type: Report from Study
  Country: US (occurrence: US)
  Receive Date: 20210225
  Receipt Date: 20210225
  Transmission Date: 20210420
  Serious: Yes (Other)
  Sender: FDA-Public Use
  Company Number: US-GILEAD-2021-0518199

PATIENT
  Age: 51 Year
  Sex: Female

DRUGS (1)
  1. AZTREONAM LYSINE [Suspect]
     Active Substance: AZTREONAM LYSINE
     Indication: CYSTIC FIBROSIS
     Dosage: 75 MG, TID 28 DAYS ON AND 28 DAYS OFF
     Route: 065
     Dates: start: 202012

REACTIONS (3)
  - Pneumonia [Recovering/Resolving]
  - Cystic fibrosis [Not Recovered/Not Resolved]
  - Forced expiratory volume decreased [Unknown]
